FAERS Safety Report 10240598 (Version 1)
Quarter: 2014Q2

REPORT INFORMATION
  Report Type: Spontaneous
  Country: US (occurrence: None)
  Receive Date: 20140613
  Receipt Date: 20140613
  Transmission Date: 20141212
  Serious: Yes (Disabling)
  Sender: FDA-Public Use
  Company Number: None

PATIENT
  Age: 43 Year
  Sex: 0
  Weight: 77.11 kg

DRUGS (1)
  1. LEVAQUIN [Suspect]
     Indication: PHARYNGITIS STREPTOCOCCAL
     Dosage: 1 PILL  ONCE DAILY  TAKEN BY MOUTH
     Route: 048
     Dates: start: 20130529, end: 20130529

REACTIONS (7)
  - Insomnia [None]
  - Tremor [None]
  - Tinnitus [None]
  - Heart rate increased [None]
  - Hyperhidrosis [None]
  - Visual impairment [None]
  - Feeling cold [None]
